FAERS Safety Report 6200380-0 (Version None)
Quarter: 2009Q2

REPORT INFORMATION
  Report Type: 
  Country: None (occurrence: None)
  Receive Date: 20090522
  Receipt Date: 20090521
  Transmission Date: 20091009
  Serious: Yes (Death)
  Sender: FDA-Public Use
  Company Number: CA-B.I. PHARMACEUTICALS,INC./RIDGEFIELD-2009-CN-00375CN

PATIENT
  Sex: Female

DRUGS (1)
  1. MOBICOX [Suspect]

REACTIONS (1)
  - MYOCARDIAL INFARCTION [None]
